FAERS Safety Report 10143029 (Version 1)
Quarter: 2014Q2

REPORT INFORMATION
  Report Type: Spontaneous
  Country: US (occurrence: None)
  Receive Date: 20140429
  Receipt Date: 20140429
  Transmission Date: 20141212
  Serious: No
  Sender: FDA-Public Use
  Company Number: None

PATIENT
  Age: 44 Year
  Sex: Female
  Weight: 68.04 kg

DRUGS (5)
  1. LAMICTAL [Suspect]
     Indication: AFFECTIVE DISORDER
     Dosage: 3 PILLS, QD, ORAL
     Route: 048
     Dates: start: 20100401, end: 20100525
  2. BUSPAR [Concomitant]
  3. SINGULAR [Concomitant]
  4. SYMBICORT [Concomitant]
  5. NEXUM [Concomitant]

REACTIONS (2)
  - Headache [None]
  - Product substitution issue [None]
